FAERS Safety Report 10089726 (Version 1)
Quarter: 2014Q2

REPORT INFORMATION
  Report Type: Spontaneous
  Country: SE (occurrence: SE)
  Receive Date: 20140421
  Receipt Date: 20140421
  Transmission Date: 20141212
  Serious: Yes (Other)
  Sender: FDA-Public Use
  Company Number: SE-MERCK-1404SWE010360

PATIENT
  Age: 73 Year
  Sex: Male

DRUGS (2)
  1. JANUVIA [Suspect]
     Indication: TYPE 2 DIABETES MELLITUS
     Dosage: 100 MG, QD
     Route: 048
     Dates: start: 2013, end: 20130626
  2. JANUMET [Suspect]
     Indication: TYPE 2 DIABETES MELLITUS
     Dosage: TOTAL DAILY DOSE: 100/2000 MG
     Route: 048
     Dates: start: 2011

REACTIONS (3)
  - Cardiac operation [Unknown]
  - Overdose [Unknown]
  - Pain in extremity [Recovered/Resolved]
